FAERS Safety Report 20069463 (Version 1)
Quarter: 2021Q4

REPORT INFORMATION
  Report Type: Spontaneous
  Country: FR (occurrence: FR)
  Receive Date: 20211115
  Receipt Date: 20211115
  Transmission Date: 20220303
  Serious: Yes (Hospitalization, Other)
  Sender: FDA-Public Use
  Company Number: FR-GLAXOSMITHKLINE-FR2021EME214104

PATIENT
  Age: 51 Year
  Sex: Female

DRUGS (6)
  1. MOMETASONE FUROATE [Suspect]
     Active Substance: MOMETASONE FUROATE
     Indication: Nasal obstruction
     Dosage: 2 DF, QD, IN EACH NOSTRIL, NASAL
     Route: 045
     Dates: start: 20210626, end: 2021
  2. ZOPICLONE [Suspect]
     Active Substance: ZOPICLONE
     Indication: Insomnia
     Dosage: 0.5 DF, QD, (7.5 MG) IN THE EVENING; SCORED FILM-COATED TABLET
     Route: 065
     Dates: start: 2020
  3. ATARAX [Suspect]
     Active Substance: HYDROXYZINE HYDROCHLORIDE
     Indication: Anxiety
     Dosage: 1 DF, QD, IN THE EVENING;
     Route: 048
     Dates: start: 20210626, end: 2021
  4. PAROXETINE [Suspect]
     Active Substance: PAROXETINE
     Indication: Depression
     Dosage: 2 DF, QD (20 MG)
     Route: 048
  5. ALPRAZOLAM [Concomitant]
     Active Substance: ALPRAZOLAM
     Indication: Anxiety
     Dosage: 0.5 DF, BID
     Route: 048
     Dates: start: 20200304
  6. ACETAMINOPHEN [Concomitant]
     Active Substance: ACETAMINOPHEN
     Indication: Pain
     Dosage: 1 DF, TID
     Route: 048

REACTIONS (4)
  - Phlebitis [Recovered/Resolved]
  - Toxic skin eruption [Recovering/Resolving]
  - Alopecia [Recovering/Resolving]
  - Pulmonary embolism [Recovered/Resolved]

NARRATIVE: CASE EVENT DATE: 20210801
